FAERS Safety Report 8996553 (Version 3)
Quarter: 2013Q4

REPORT INFORMATION
  Report Type: Spontaneous
  Country: TR (occurrence: TR)
  Receive Date: 20130104
  Receipt Date: 20131216
  Transmission Date: 20140711
  Serious: Yes (Other)
  Sender: FDA-Public Use
  Company Number: TR-AMGEN-TURSP2012084337

PATIENT
  Age: 26 Year
  Sex: Female

DRUGS (2)
  1. ENBREL [Suspect]
     Indication: RHEUMATOID ARTHRITIS
     Dosage: 50 MG, WEEKLY
     Route: 058
     Dates: start: 20111102, end: 20121218
  2. ENBREL [Suspect]
     Dosage: 50 MG, UNK.ONCE IN 3 WEEKS
     Route: 058
     Dates: start: 201306

REACTIONS (7)
  - Fatigue [Recovered/Resolved]
  - Ear discomfort [Recovered/Resolved]
  - Nasal obstruction [Recovered/Resolved]
  - Throat irritation [Not Recovered/Not Resolved]
  - Productive cough [Not Recovered/Not Resolved]
  - Tooth infection [Recovered/Resolved]
  - Influenza [Recovered/Resolved]
